FAERS Safety Report 7063205-X (Version None)
Quarter: 2010Q4

REPORT INFORMATION
  Report Type: 
  Country: None (occurrence: None)
  Receive Date: 20101026
  Receipt Date: 20100505
  Transmission Date: 20110411
  Serious: Yes (Other)
  Sender: FDA-Public Use
  Company Number: US-PFIZER INC-2010057469

PATIENT
  Sex: Male
  Weight: 83 kg

DRUGS (4)
  1. LIPITOR [Suspect]
     Dosage: 40 MG, 1X/DAY
     Route: 048
     Dates: start: 20070101
  2. ALTACE [Concomitant]
     Dosage: 2X/DAY
     Route: 048
  3. CARVEDILOL [Concomitant]
     Dosage: 2X/DAY
  4. DIGOXIN [Concomitant]
     Dosage: DAILY

REACTIONS (1)
  - MUSCULAR WEAKNESS [None]
